FAERS Safety Report 14299097 (Version 1)
Quarter: 2017Q4

REPORT INFORMATION
  Report Type: Spontaneous
  Country: DK (occurrence: DK)
  Receive Date: 20171218
  Receipt Date: 20171218
  Transmission Date: 20180321
  Serious: Yes (Hospitalization)
  Sender: FDA-Public Use
  Company Number: DK-JNJFOC-20171208084

PATIENT
  Age: 85 Year
  Sex: Female
  Weight: 78 kg

DRUGS (3)
  1. CODEINE [Concomitant]
     Active Substance: CODEINE
     Indication: DIARRHOEA
     Route: 048
     Dates: start: 20161013
  2. IMODIUM SMELT [Suspect]
     Active Substance: LOPERAMIDE HYDROCHLORIDE
     Indication: DIARRHOEA
     Route: 048
     Dates: start: 20160101, end: 20170801
  3. IMODIUM SMELT [Suspect]
     Active Substance: LOPERAMIDE HYDROCHLORIDE
     Route: 048

REACTIONS (5)
  - Azotaemia [Recovered/Resolved]
  - Fluid replacement [Recovered/Resolved]
  - Diarrhoea [Recovered/Resolved]
  - Blood creatinine increased [Recovered/Resolved]
  - Dehydration [Recovered/Resolved]

NARRATIVE: CASE EVENT DATE: 20160101
